FAERS Safety Report 19013915 (Version 1)
Quarter: 2021Q1

REPORT INFORMATION
  Report Type: Report from Study
  Country: None (occurrence: US)
  Receive Date: 20210315
  Receipt Date: 20210315
  Transmission Date: 20210420
  Serious: Yes (Hospitalization)
  Sender: FDA-Public Use
  Company Number: US-ABBVIE-21K-163-3813265-00

PATIENT
  Sex: Male

DRUGS (1)
  1. HUMIRA [Suspect]
     Active Substance: ADALIMUMAB
     Indication: CROHN^S DISEASE
     Dosage: CF PEN
     Route: 058
     Dates: end: 2020

REACTIONS (3)
  - Post procedural complication [Not Recovered/Not Resolved]
  - Small intestine operation [Unknown]
  - Post procedural drainage [Not Recovered/Not Resolved]

NARRATIVE: CASE EVENT DATE: 2020
